FAERS Safety Report 22787986 (Version 2)
Quarter: 2023Q4

REPORT INFORMATION
  Report Type: Spontaneous
  Country: US (occurrence: US)
  Receive Date: 20230804
  Receipt Date: 20231027
  Transmission Date: 20240110
  Serious: No
  Sender: FDA-Public Use
  Company Number: US-GSKCCFUS-Case-01764481_AE-99128

PATIENT
  Sex: Male

DRUGS (2)
  1. NUCALA [Suspect]
     Active Substance: MEPOLIZUMAB
     Indication: Product used for unknown indication
     Dosage: 100 MG/ML ABOUT TWO MONTHS AGO
     Dates: start: 2023
  2. DOXYCYCLINE [Suspect]
     Active Substance: DOXYCYCLINE
     Indication: Product used for unknown indication
     Dosage: UNK FOR ABOUT 9 DAYS
     Dates: start: 2023, end: 2023

REACTIONS (5)
  - Oedema peripheral [Not Recovered/Not Resolved]
  - Groin infection [Not Recovered/Not Resolved]
  - Back pain [Unknown]
  - Headache [Unknown]
  - Rash [Recovered/Resolved]

NARRATIVE: CASE EVENT DATE: 20230101
